FAERS Safety Report 22345381 (Version 1)
Quarter: 2023Q2

REPORT INFORMATION
  Report Type: Spontaneous
  Country: GB (occurrence: GB)
  Receive Date: 20230519
  Receipt Date: 20230519
  Transmission Date: 20230721
  Serious: Yes (Hospitalization)
  Sender: FDA-Public Use
  Company Number: GB-ROCHE-3346438

PATIENT
  Age: 77 Year
  Weight: 84 kg

DRUGS (14)
  1. DOXORUBICIN HYDROCHLORIDE [Suspect]
     Active Substance: DOXORUBICIN HYDROCHLORIDE
     Indication: Follicular lymphoma
     Dosage: DATE OF LAST DOSE OF ADMINISTRATION WAS ON 20/APR/2021
     Route: 065
     Dates: start: 20210329
  2. VINCRISTINE SULFATE [Suspect]
     Active Substance: VINCRISTINE SULFATE
     Indication: Follicular lymphoma
     Dosage: DATE OF LAST DOSE OF ADMINISTRATION WAS ON 20/APR/2021
     Route: 065
     Dates: start: 20210329
  3. CYCLOPHOSPHAMIDE [Suspect]
     Active Substance: CYCLOPHOSPHAMIDE
     Indication: Follicular lymphoma
     Dosage: DATE OF LAST DOSE OF ADMINISTRATION WAS ON 20/APR/2021
     Route: 065
     Dates: start: 20210329
  4. PREDNISONE [Suspect]
     Active Substance: PREDNISONE
     Indication: Follicular lymphoma
     Dosage: DATE OF LAST DOSE OF ADMINISTRATION WAS ON 20/APR/2021
     Route: 065
     Dates: start: 20210329
  5. RITUXIMAB [Suspect]
     Active Substance: RITUXIMAB
     Indication: Follicular lymphoma
     Dosage: DATE OF LAST DOSE OF ADMINISTRATION WAS ON 20/APR/2021
     Route: 065
     Dates: start: 20210329
  6. ALLOPURINOL [Concomitant]
     Active Substance: ALLOPURINOL
     Dosage: 300 MG, 1X/DAY
     Route: 048
     Dates: start: 20210325
  7. BACTRIM [Concomitant]
     Active Substance: SULFAMETHOXAZOLE\TRIMETHOPRIM
     Dosage: 960 MG
     Route: 048
     Dates: start: 20210329
  8. FILGRASTIM [Concomitant]
     Active Substance: FILGRASTIM
     Dosage: 6 MG
     Route: 048
     Dates: start: 20210401
  9. IRBESARTAN [Concomitant]
     Active Substance: IRBESARTAN
     Indication: Hypertension
     Dosage: 300 MG, 1X/DAY
     Route: 048
     Dates: start: 2000
  10. LIPIDIL [Concomitant]
     Active Substance: FENOFIBRATE
     Dosage: 300 MG, 1X/DAY
     Route: 048
     Dates: start: 1998
  11. MIRTAZAPINE [Concomitant]
     Active Substance: MIRTAZAPINE
     Indication: Depression
     Dosage: 15 MG, 1X/DAY
     Route: 065
     Dates: start: 2017
  12. MOVICOL [Concomitant]
     Active Substance: POLYETHYLENE GLYCOL 3350\POTASSIUM CHLORIDE\SODIUM BICARBONATE\SODIUM CHLORIDE
     Dosage: UNK UNK, AS NEEDED
     Route: 048
     Dates: start: 20210327
  13. RABEPRAZOLE SODIUM [Concomitant]
     Active Substance: RABEPRAZOLE SODIUM
     Dosage: 145 MG
     Route: 048
     Dates: start: 200112
  14. VALACYCLOVIR HYDROCHLORIDE [Concomitant]
     Active Substance: VALACYCLOVIR HYDROCHLORIDE
     Dosage: 500 MG, 1X/DAY
     Route: 048
     Dates: start: 20210325

REACTIONS (1)
  - Infection [Recovered/Resolved]

NARRATIVE: CASE EVENT DATE: 20210429
